FAERS Safety Report 8548003 (Version 3)
Quarter: 2013Q4

REPORT INFORMATION
  Report Type: Spontaneous
  Country: JP (occurrence: JP)
  Receive Date: 20120504
  Receipt Date: 20131106
  Transmission Date: 20140711
  Serious: Yes (Hospitalization)
  Sender: FDA-Public Use
  Company Number: JP-009507513-1205USA00451

PATIENT
  Age: 68 Year
  Sex: Male
  Weight: 74 kg

DRUGS (7)
  1. JANUVIA TABLETS 50MG [Suspect]
     Indication: DIABETES MELLITUS
     Route: 048
     Dates: start: 20110613, end: 20111031
  2. AMARYL [Concomitant]
     Indication: DIABETES MELLITUS
     Dosage: DIVIDED DOSE FREQUENCY U
     Route: 048
     Dates: start: 20110623, end: 20110920
  3. AMARYL [Concomitant]
     Dosage: DIVIDED DOSE FREQUENCY U
     Route: 048
     Dates: start: 20110920
  4. AMARYL [Concomitant]
     Route: 048
     Dates: start: 20060214
  5. DIOVAN [Concomitant]
     Indication: HYPERTENSION
     Dosage: DIVIDED DOSE FREQUENCY U
     Route: 048
     Dates: start: 20110613
  6. DIOVAN [Concomitant]
     Route: 048
     Dates: start: 20100819
  7. PURSENNID (SENNOSIDES) [Concomitant]
     Indication: CONSTIPATION
     Route: 048
     Dates: start: 20110816

REACTIONS (2)
  - Intestinal obstruction [Unknown]
  - Intestinal obstruction [Recovered/Resolved]
